FAERS Safety Report 4484251-6 (Version None)
Quarter: 2004Q4

REPORT INFORMATION
  Report Type: 
  Country: None (occurrence: None)
  Receive Date: 20041025
  Receipt Date: 20041016
  Transmission Date: 20050328
  Serious: Yes (Death)
  Sender: FDA-Public Use
  Company Number: GB-GLAXOSMITHKLINE-B0348424A

PATIENT
  Age: 62 Year
  Sex: Male

DRUGS (4)
  1. PAROXETINE [Suspect]
     Indication: DEPRESSION
     Dosage: 20MG UNKNOWN
     Route: 048
     Dates: start: 20040110, end: 20040201
  2. DOTHIEPIN HYDROCHLORIDE [Concomitant]
     Route: 048
  3. CLOMIPRAMINE HCL [Concomitant]
     Dosage: 50MG PER DAY
     Route: 048
  4. VENLAFAXINE HCL [Concomitant]
     Dosage: 75MG PER DAY
     Route: 048

REACTIONS (5)
  - COMPLETED SUICIDE [None]
  - CONDITION AGGRAVATED [None]
  - DEPRESSION [None]
  - MALAISE [None]
  - TREATMENT NONCOMPLIANCE [None]
